FAERS Safety Report 8456118-X (Version None)
Quarter: 2012Q2

REPORT INFORMATION
  Report Type: 
  Country: None (occurrence: None)
  Receive Date: 20120621
  Receipt Date: 20120612
  Transmission Date: 20120825
  Serious: Yes (Other)
  Sender: FDA-Public Use
  Company Number: PHHY2010GB16981

PATIENT
  Sex: Female
  Weight: 58 kg

DRUGS (6)
  1. ESTRADERM [Suspect]
     Route: 062
  2. ESTRADERM [Suspect]
     Dosage: LOWER DOSE PATCH 25
     Route: 062
  3. ESTRADERM [Suspect]
     Indication: HORMONE REPLACEMENT THERAPY
     Route: 062
     Dates: start: 20100112, end: 20100312
  4. DESLORATADINE [Concomitant]
     Indication: HYPERSENSITIVITY
     Dosage: 5 MG
     Route: 048
     Dates: start: 20020405
  5. ESTRADERM [Suspect]
     Indication: HORMONE REPLACEMENT THERAPY
     Route: 062
  6. LEVOTHYROXINE SODIUM [Concomitant]
     Indication: HYPOTHYROIDISM
     Dosage: 50 MCG
     Dates: start: 20040929

REACTIONS (8)
  - BREAST DISORDER [None]
  - BREAST TENDERNESS [None]
  - BREAST PAIN [None]
  - TEARFULNESS [None]
  - FEELING ABNORMAL [None]
  - MALAISE [None]
  - BREAST CYST [None]
  - BREAST MASS [None]
